FAERS Safety Report 5170379-4 (Version None)
Quarter: 2006Q4

REPORT INFORMATION
  Report Type: 
  Country: None (occurrence: None)
  Receive Date: 20061204
  Receipt Date: 20061123
  Transmission Date: 20070319
  Serious: Yes (Hospitalization)
  Sender: FDA-Public Use
  Company Number: 2006126219

PATIENT
  Age: 69 Year
  Sex: Male
  Weight: 82.8 kg

DRUGS (5)
  1. SUTENT [Suspect]
     Indication: RENAL CELL CARCINOMA STAGE UNSPECIFIED
     Dosage: 50 MG (50 MG, DAILY - CYCLIC), ORAL
     Route: 048
     Dates: start: 20060706
  2. WARFARIN SODIUM [Concomitant]
  3. CO-CODAMOL (CODEINE PHOSPHATE, PARACETAMOL) [Concomitant]
  4. SENOKOT [Concomitant]
  5. LACTULOSE [Suspect]

REACTIONS (9)
  - AMINO ACID LEVEL INCREASED [None]
  - DIZZINESS [None]
  - DYSPEPSIA [None]
  - FACE INJURY [None]
  - FACIAL BONES FRACTURE [None]
  - FALL [None]
  - HEAD INJURY [None]
  - ORTHOSTATIC HYPOTENSION [None]
  - SYNCOPE [None]
